FAERS Safety Report 8560565-5 (Version None)
Quarter: 2012Q3

REPORT INFORMATION
  Report Type: 
  Country: None (occurrence: None)
  Receive Date: 20120802
  Receipt Date: 20120730
  Transmission Date: 20120928
  Serious: Yes (Other)
  Sender: FDA-Public Use
  Company Number: US-ASTRAZENECA-2012SE40312

PATIENT
  Sex: Male

DRUGS (1)
  1. NEXIUM [Suspect]
     Dosage: STARTED IN 2005-2006
     Route: 048

REACTIONS (4)
  - CATARACT [None]
  - GOUT [None]
  - ANGINA PECTORIS [None]
  - ROTATOR CUFF SYNDROME [None]
